FAERS Safety Report 11857370 (Version 1)
Quarter: 2015Q4

REPORT INFORMATION
  Report Type: Spontaneous
  Country: FR (occurrence: FR)
  Receive Date: 20151221
  Receipt Date: 20151221
  Transmission Date: 20160305
  Serious: Yes (Hospitalization, Other)
  Sender: FDA-Public Use
  Company Number: FR-WATSON-2015-16718

PATIENT
  Age: 65 Year
  Sex: Male

DRUGS (5)
  1. CEFTRIAXONE (UNKNOWN) [Suspect]
     Active Substance: CEFTRIAXONE
     Indication: WHIPPLE^S DISEASE
     Dosage: UNK
     Route: 042
  2. DOXYCYCLINE (UNKNOWN) [Suspect]
     Active Substance: DOXYCYCLINE
     Indication: WHIPPLE^S DISEASE
     Dosage: 200 MG, DAILY
     Route: 065
  3. SILVER SULFADIAZINE (UNKNOWN) [Suspect]
     Active Substance: SILVER SULFADIAZINE
     Indication: WHIPPLE^S DISEASE
     Dosage: 3 G, DAILY
     Route: 065
  4. DOXYCYCLINE (UNKNOWN) [Suspect]
     Active Substance: DOXYCYCLINE
     Dosage: 200 MG, DAILY
     Route: 065
  5. HYDROXYCHLOROQUINE [Concomitant]
     Active Substance: HYDROXYCHLOROQUINE
     Indication: WHIPPLE^S DISEASE
     Dosage: 600 MG, DAILY
     Route: 065

REACTIONS (1)
  - Immune reconstitution inflammatory syndrome [Recovered/Resolved]
